FAERS Safety Report 9667891 (Version 1)
Quarter: 2013Q4

REPORT INFORMATION
  Report Type: Spontaneous
  Country: JP (occurrence: JP)
  Receive Date: 20131104
  Receipt Date: 20131104
  Transmission Date: 20140711
  Serious: Yes (Death, Other)
  Sender: FDA-Public Use
  Company Number: JP-ROXANE LABORATORIES, INC.-2013-RO-01761RO

PATIENT
  Age: 57 Year
  Sex: Female

DRUGS (10)
  1. CYCLOPHOSPHAMIDE TABLETS USP [Suspect]
     Indication: DIFFUSE LARGE B-CELL LYMPHOMA
  2. CYCLOPHOSPHAMIDE TABLETS USP [Suspect]
     Indication: EWING^S SARCOMA
  3. HYDROXYDAUNOMYCIN HYDROCHLORIDE [Suspect]
     Indication: DIFFUSE LARGE B-CELL LYMPHOMA
  4. VINCRISTINE [Suspect]
     Indication: DIFFUSE LARGE B-CELL LYMPHOMA
  5. VINCRISTINE [Suspect]
     Indication: EWING^S SARCOMA
  6. PREDNISOLONE [Suspect]
     Indication: DIFFUSE LARGE B-CELL LYMPHOMA
  7. IFOSPHAMIDE [Suspect]
     Indication: EWING^S SARCOMA
  8. ETOPOSIDE [Suspect]
     Indication: EWING^S SARCOMA
  9. ACTINOMYCIN D [Suspect]
     Indication: EWING^S SARCOMA
  10. GRANULOCYTE COLONY-STIMULATING FACTOR NOS [Concomitant]

REACTIONS (4)
  - Malignant pleural effusion [Fatal]
  - Metastases to lung [Fatal]
  - Ewing^s sarcoma [Unknown]
  - Pneumocystis jirovecii pneumonia [Unknown]
